FAERS Safety Report 4604109-9 (Version None)
Quarter: 2005Q1

REPORT INFORMATION
  Report Type: 
  Country: None (occurrence: None)
  Receive Date: 20050309
  Receipt Date: 20050309
  Transmission Date: 20050727
  Serious: Yes (Other)
  Sender: FDA-Public Use
  Company Number: None

PATIENT
  Age: 58 Year
  Sex: Female
  Weight: 59.8748 kg

DRUGS (3)
  1. CVS DAYTIME NIGHTTIME COMTREX [Suspect]
     Indication: BRONCHITIS
     Dosage: TWICE
     Dates: start: 20050215, end: 20050216
  2. CVS DAYTIME NIGHTTIME COMTREX [Suspect]
     Indication: NASOPHARYNGITIS
     Dosage: TWICE
     Dates: start: 20050215, end: 20050216
  3. COMTREX SEVERE HEAD COLD [Suspect]
     Dosage: ONCE
     Dates: start: 20050217, end: 20050217

REACTIONS (2)
  - INSOMNIA [None]
  - TREMOR [None]
